FAERS Safety Report 17498686 (Version 2)
Quarter: 2020Q1

REPORT INFORMATION
  Report Type: Report from Study
  Country: None (occurrence: LB)
  Receive Date: 20200305
  Receipt Date: 20200306
  Transmission Date: 20200409
  Serious: Yes (Death, Hospitalization, Other)
  Sender: FDA-Public Use
  Company Number: LB-ABBVIE-20K-093-3303700-00

PATIENT
  Age: 78 Year
  Sex: Male
  Weight: 103 kg

DRUGS (2)
  1. PREDICOR [Concomitant]
     Active Substance: PREDNISONE
     Indication: PRODUCT USED FOR UNKNOWN INDICATION
     Dosage: 50MG TO BE TAPERED
  2. HUMIRA [Suspect]
     Active Substance: ADALIMUMAB
     Indication: CROHN^S DISEASE
     Route: 058
     Dates: start: 2017, end: 2018

REACTIONS (7)
  - Headache [Fatal]
  - Immunodeficiency [Recovered/Resolved]
  - Leukaemia [Fatal]
  - Platelet count decreased [Fatal]
  - Immunodeficiency [Fatal]
  - Fatigue [Recovered/Resolved]
  - Dyspnoea [Fatal]

NARRATIVE: CASE EVENT DATE: 201806
